FAERS Safety Report 16578647 (Version 3)
Quarter: 2020Q1

REPORT INFORMATION
  Report Type: Report from Study
  Country: None (occurrence: BR)
  Receive Date: 20190716
  Receipt Date: 20200206
  Transmission Date: 20200409
  Serious: Yes (Hospitalization, Disabling, Other)
  Sender: FDA-Public Use
  Company Number: BR-ABBVIE-19K-020-2851000-00

PATIENT
  Sex: Female
  Weight: 56 kg

DRUGS (3)
  1. HUMIRA [Suspect]
     Active Substance: ADALIMUMAB
     Route: 058
     Dates: start: 20190627
  2. HUMIRA [Suspect]
     Active Substance: ADALIMUMAB
     Indication: PSORIATIC ARTHROPATHY
     Route: 058
     Dates: start: 20181127, end: 201909
  3. METHOTREXATE. [Concomitant]
     Active Substance: METHOTREXATE
     Indication: PSORIASIS

REACTIONS (16)
  - Mass [Recovering/Resolving]
  - Skin exfoliation [Recovered/Resolved]
  - Spinal pain [Unknown]
  - Wound [Not Recovered/Not Resolved]
  - Intervertebral disc protrusion [Not Recovered/Not Resolved]
  - Surgical failure [Unknown]
  - Procedural pain [Unknown]
  - Purulence [Not Recovered/Not Resolved]
  - Purulent discharge [Not Recovered/Not Resolved]
  - Joint range of motion decreased [Recovered/Resolved]
  - Full blood count abnormal [Unknown]
  - Tendon rupture [Recovering/Resolving]
  - Psoriasis [Not Recovered/Not Resolved]
  - Blister rupture [Not Recovered/Not Resolved]
  - Yellow skin [Not Recovered/Not Resolved]
  - Gait disturbance [Not Recovered/Not Resolved]

NARRATIVE: CASE EVENT DATE: 2019
